FAERS Safety Report 4860796-1 (Version None)
Quarter: 2005Q4

REPORT INFORMATION
  Report Type: 
  Country: None (occurrence: None)
  Receive Date: 20051216
  Receipt Date: 20051216
  Transmission Date: 20060501
  Serious: Yes (Death)
  Sender: FDA-Public Use
  Company Number: None

PATIENT
  Age: 56 Year
  Sex: Male
  Weight: 92.9 kg

DRUGS (2)
  1. INFLIXIMAB    UNK    CENTOCOR [Suspect]
     Indication: CROHN'S DISEASE
     Dosage: Q 2 MONTHS   IV
     Route: 042
     Dates: start: 20050101, end: 20050702
  2. AMBISOME [Suspect]
     Indication: HISTOPLASMOSIS DISSEMINATED
     Dosage: 300 MG   Q 24 HOURS     IV
     Route: 042
     Dates: start: 20050706, end: 20050730

REACTIONS (17)
  - DIALYSIS [None]
  - EPSTEIN-BARR VIRUS INFECTION [None]
  - ERYTHEMA [None]
  - FEBRILE NEUTROPENIA [None]
  - GENERAL PHYSICAL HEALTH DETERIORATION [None]
  - HEPATIC ENCEPHALOPATHY [None]
  - HISTOPLASMOSIS DISSEMINATED [None]
  - IMMUNOSUPPRESSION [None]
  - LIVER FUNCTION TEST ABNORMAL [None]
  - MENTAL STATUS CHANGES [None]
  - MULTI-ORGAN DISORDER [None]
  - NON-HODGKIN'S LYMPHOMA [None]
  - PANCYTOPENIA [None]
  - PYREXIA [None]
  - RENAL FAILURE [None]
  - RESPIRATORY FAILURE [None]
  - SUBCUTANEOUS NODULE [None]
